FAERS Safety Report 8287325-7 (Version None)
Quarter: 2012Q2

REPORT INFORMATION
  Report Type: 
  Country: None (occurrence: None)
  Receive Date: 20120416
  Receipt Date: 20120416
  Transmission Date: 20120825
  Serious: Yes (Other)
  Sender: FDA-Public Use
  Company Number: None

PATIENT
  Age: 62 Year
  Sex: Male
  Weight: 108.86 kg

DRUGS (4)
  1. XARELTO [Suspect]
     Indication: CEREBROVASCULAR ACCIDENT
     Dosage: 1 TAB
     Route: 048
     Dates: start: 20120412, end: 20120414
  2. XARELTO [Suspect]
     Indication: THROMBOSIS PROPHYLAXIS
     Dosage: 1 TAB
     Route: 048
     Dates: start: 20120412, end: 20120414
  3. XARELTO [Suspect]
     Indication: CEREBROVASCULAR ACCIDENT
     Dosage: 1 TAB
     Route: 048
  4. XARELTO [Suspect]
     Indication: THROMBOSIS PROPHYLAXIS
     Dosage: 1 TAB
     Route: 048

REACTIONS (3)
  - INSOMNIA [None]
  - HALLUCINATION [None]
  - EPISTAXIS [None]
